FAERS Safety Report 4292868-7 (Version None)
Quarter: 2004Q1

REPORT INFORMATION
  Report Type: 
  Country: None (occurrence: None)
  Receive Date: 20040212
  Receipt Date: 20030714
  Transmission Date: 20041129
  Serious: No
  Sender: FDA-Public Use
  Company Number: US-GLAXOSMITHKLINE-A0417027A

PATIENT
  Age: 58 Year
  Sex: Female

DRUGS (3)
  1. PAXIL [Suspect]
     Dosage: 40MG PER DAY
  2. ZYVOX [Suspect]
     Dosage: 600MG TWICE PER DAY
     Route: 048
     Dates: start: 20030516, end: 20030101
  3. THEOPHYLLINE [Concomitant]

REACTIONS (3)
  - MUSCLE RIGIDITY [None]
  - TACHYARRHYTHMIA [None]
  - TREMOR [None]
